FAERS Safety Report 24806278 (Version 1)
Quarter: 2025Q1

REPORT INFORMATION
  Report Type: Spontaneous
  Country: US (occurrence: US)
  Receive Date: 20250103
  Receipt Date: 20250103
  Transmission Date: 20250408
  Serious: Yes (Hospitalization, Other)
  Sender: ALEXION PHARMACEUTICALS
  Company Number: US-AstraZeneca-CH-00777668A

PATIENT
  Age: 68 Year

DRUGS (4)
  1. IMFINZI [Suspect]
     Active Substance: DURVALUMAB
     Route: 065
  2. IMFINZI [Suspect]
     Active Substance: DURVALUMAB
     Route: 065
  3. IMFINZI [Suspect]
     Active Substance: DURVALUMAB
     Route: 065
  4. IMFINZI [Suspect]
     Active Substance: DURVALUMAB
     Route: 065

REACTIONS (7)
  - Abdominal discomfort [Unknown]
  - Ventricular tachycardia [Unknown]
  - Heart rate irregular [Unknown]
  - Cardiomyopathy [Unknown]
  - Myocarditis [Unknown]
  - Cardiotoxicity [Unknown]
  - Coma [Unknown]
